FAERS Safety Report 7746377-0 (Version None)
Quarter: 2011Q3

REPORT INFORMATION
  Report Type: 
  Country: None (occurrence: None)
  Receive Date: 20110913
  Receipt Date: 20110913
  Transmission Date: 20111222
  Serious: Yes (Other)
  Sender: FDA-Public Use
  Company Number: None

PATIENT
  Age: 59 Year
  Sex: Female
  Weight: 61.234 kg

DRUGS (1)
  1. METOCLOPRAMIDE [Suspect]
     Indication: IMPAIRED GASTRIC EMPTYING
     Dosage: 10MG
     Route: 048

REACTIONS (5)
  - MUSCLE RIGIDITY [None]
  - MUSCLE SPASMS [None]
  - NAUSEA [None]
  - TARDIVE DYSKINESIA [None]
  - HYPERHIDROSIS [None]
